FAERS Safety Report 22191161 (Version 3)
Quarter: 2023Q2

REPORT INFORMATION
  Report Type: Spontaneous
  Country: US (occurrence: US)
  Receive Date: 20230410
  Receipt Date: 20230505
  Transmission Date: 20230721
  Serious: Yes (Death, Life-Threatening, Hospitalization, Other)
  Sender: FDA-Public Use
  Company Number: None

PATIENT
  Age: 30 Year
  Sex: Male
  Weight: 69.2 kg

DRUGS (16)
  1. PREDNISOLONE [Suspect]
     Active Substance: PREDNISOLONE
     Indication: Swelling face
     Dosage: UNK (DELTASONE 20MG)
     Route: 065
     Dates: start: 2021
  2. PREDNISOLONE [Suspect]
     Active Substance: PREDNISOLONE
     Indication: Periorbital oedema
     Dosage: UNK, TAPER
     Route: 065
     Dates: start: 2021
  3. PREDNISOLONE [Suspect]
     Active Substance: PREDNISOLONE
     Dosage: 2 TABLETS, (DELTASONE) 20 MG TWO TABLETS BY MOUTH DAILY FOR 4 DAYS
     Route: 048
     Dates: start: 20210724, end: 20210727
  4. PREDNISOLONE [Suspect]
     Active Substance: PREDNISOLONE
     Dosage: 2 TABLETS, (DELTASONE) 20 MG TWO TABLETS BY MOUTH DAILY FOR 5 DAYS
     Route: 048
     Dates: start: 20210921, end: 20210925
  5. DOXYCYCLINE [Suspect]
     Active Substance: DOXYCYCLINE
     Indication: Swelling face
     Dosage: UNK
     Route: 065
     Dates: start: 2021
  6. DOXYCYCLINE [Suspect]
     Active Substance: DOXYCYCLINE
     Indication: Periorbital oedema
  7. MEDROL [Suspect]
     Active Substance: METHYLPREDNISOLONE
     Indication: Swelling face
     Dosage: UNK
     Route: 065
     Dates: start: 2021
  8. MEDROL [Suspect]
     Active Substance: METHYLPREDNISOLONE
     Indication: Periorbital oedema
     Dosage: 1 TABLETS, (MEDROL DOSE PACK) 4 MG TABLET BY MOUTH 1 KIT
     Route: 048
     Dates: start: 20210902
  9. FLUCONAZOLE [Concomitant]
     Active Substance: FLUCONAZOLE
     Indication: Oesophageal candidiasis
     Dosage: UNK
     Route: 065
  10. FLUCONAZOLE [Concomitant]
     Active Substance: FLUCONAZOLE
     Indication: Oropharyngeal candidiasis
  11. FLUCONAZOLE [Concomitant]
     Active Substance: FLUCONAZOLE
     Indication: Oral candidiasis
  12. EPINEPHRINE [Concomitant]
     Active Substance: EPINEPHRINE
     Indication: Swelling face
     Dosage: UNK
     Route: 065
     Dates: start: 2021
  13. EPINEPHRINE [Concomitant]
     Active Substance: EPINEPHRINE
     Indication: Periorbital oedema
  14. BICTEGRAVIR [Concomitant]
     Active Substance: BICTEGRAVIR
     Indication: Antiretroviral therapy
     Dosage: UNK
     Route: 065
  15. EMTRICITABINE [Concomitant]
     Active Substance: EMTRICITABINE
     Indication: Antiretroviral therapy
     Dosage: UNK
     Route: 065
  16. TENOFOVIR ALAFENAMIDE [Concomitant]
     Active Substance: TENOFOVIR ALAFENAMIDE
     Indication: Antiretroviral therapy
     Dosage: UNK
     Route: 065

REACTIONS (9)
  - Kaposi^s sarcoma [Fatal]
  - Condition aggravated [Fatal]
  - Metastasis [Fatal]
  - Staphylococcal bacteraemia [Unknown]
  - Oropharyngeal candidiasis [Unknown]
  - Cytomegalovirus viraemia [Unknown]
  - Oesophageal candidiasis [Unknown]
  - Secondary syphilis [Unknown]
  - Off label use [Unknown]

NARRATIVE: CASE EVENT DATE: 20210101
